FAERS Safety Report 7249455-8 (Version None)
Quarter: 2011Q1

REPORT INFORMATION
  Report Type: 
  Country: None (occurrence: None)
  Receive Date: 20110128
  Receipt Date: 20101221
  Transmission Date: 20110831
  Serious: Yes (Disabling, Other)
  Sender: FDA-Public Use
  Company Number: US-BAYER-2010-000431

PATIENT
  Sex: Female

DRUGS (24)
  1. OMNISCAN [Suspect]
     Indication: NUCLEAR MAGNETIC RESONANCE IMAGING
     Dosage: UNK UNK, ONCE
     Dates: start: 19980601, end: 19980601
  2. OMNISCAN [Suspect]
     Indication: VENOGRAM
     Dosage: 30 ML, ONCE
     Dates: start: 20001019, end: 20001019
  3. OMNISCAN [Suspect]
     Dosage: 0.1 MMOL/KG, UNK
     Dates: start: 20031020, end: 20031020
  4. SIMVASTATIN [Concomitant]
     Indication: BLOOD CHOLESTEROL INCREASED
     Dosage: 40 MG, QD
     Route: 048
  5. OMNIPAQUE 140 [Concomitant]
     Indication: COMPUTERISED TOMOGRAM THORAX
     Dosage: UNK
     Dates: start: 19991105
  6. OMNIPAQUE 140 [Concomitant]
     Indication: COMPUTERISED TOMOGRAM ABDOMEN
     Dosage: 100 ML, UNK
     Dates: start: 20010201
  7. OMNISCAN [Suspect]
     Dosage: UNK, ONCE
     Dates: start: 20011016, end: 20101016
  8. OMNISCAN [Suspect]
     Dosage: 0.1MMOL/KG
     Dates: start: 20031003, end: 20031003
  9. SPIRONOLACTONE [Concomitant]
     Indication: FLUID RETENTION
     Dosage: 25 MG, QD
  10. COZAAR [Concomitant]
     Indication: PRODUCT USED FOR UNKNOWN INDICATION
     Dosage: 40 MG DAILY
     Dates: start: 20030101
  11. CLAFORAN [Concomitant]
     Indication: PRODUCT USED FOR UNKNOWN INDICATION
     Dosage: 1 G, BID
     Dates: start: 20030101
  12. POTASSIUM CHLORIDE [Concomitant]
     Indication: MEDICAL DIET
     Dosage: 10 MG, BID
     Route: 048
  13. NIFEDIPINE [Concomitant]
     Dosage: 60 MG/DAY
  14. IRON [IRON] [Concomitant]
  15. OMNISCAN [Suspect]
     Dosage: UNK, ONCE
     Dates: start: 20010720, end: 20010720
  16. OMNISCAN [Suspect]
     Dosage: DAILY DOSE 40 ML
     Dates: start: 20021101, end: 20021101
  17. OMNISCAN [Suspect]
     Dosage: 0.2MMOL/KG
     Route: 042
     Dates: start: 20030927, end: 20030927
  18. MAGNEVIST [Suspect]
     Indication: NUCLEAR MAGNETIC RESONANCE IMAGING ABDOMINAL
     Dosage: 20 ML, ONCE
     Dates: start: 20030909, end: 20030909
  19. COUMADIN [Concomitant]
     Indication: ANTICOAGULANT THERAPY
     Dosage: UNK
  20. MAXIDEX [Concomitant]
     Dosage: UNK
     Dates: start: 20030101
  21. OMNISCAN [Suspect]
     Dosage: 30 ML, ONCE
     Dates: start: 19990514, end: 19990514
  22. OMNISCAN [Suspect]
     Indication: NUCLEAR MAGNETIC RESONANCE IMAGING ABDOMINAL
     Dosage: UNK, ONCE
     Dates: start: 20000418, end: 20000418
  23. OMNISCAN [Suspect]
     Dosage: 50 ML, ONCE
     Dates: start: 20030930, end: 20030930
  24. AVAPRO [Concomitant]
     Indication: HYPERTENSION
     Dosage: 150 MG, QD
     Route: 048

REACTIONS (14)
  - NEPHROGENIC SYSTEMIC FIBROSIS [None]
  - PAIN [None]
  - AMNESIA [None]
  - OEDEMA PERIPHERAL [None]
  - IMPAIRED SELF-CARE [None]
  - SCAR [None]
  - SOFT TISSUE DISORDER [None]
  - SKIN DISORDER [None]
  - ANXIETY [None]
  - STRESS [None]
  - SKIN FIBROSIS [None]
  - MUSCLE FIBROSIS [None]
  - ABASIA [None]
  - JOINT CONTRACTURE [None]
